FAERS Safety Report 8251700-7 (Version None)
Quarter: 2012Q2

REPORT INFORMATION
  Report Type: 
  Country: None (occurrence: None)
  Receive Date: 20120402
  Receipt Date: 20120326
  Transmission Date: 20120825
  Serious: Yes (Other)
  Sender: FDA-Public Use
  Company Number: US-TEVA-330617USA

PATIENT
  Age: 36 Week
  Sex: Male

DRUGS (21)
  1. LIDOCAINE [Interacting]
     Dosage: 50 MCG/KG/MIN
  2. LIDOCAINE [Interacting]
     Route: 040
  3. CALCIUM GLUCONATE [Concomitant]
     Route: 065
  4. CALCIUM CARBONATE [Concomitant]
     Dosage: 10 MG/KG/DOSE
     Route: 065
  5. MILRINONE [Concomitant]
     Dosage: 0.2 MCG/KG/MIN
     Route: 065
  6. ESMOLOL HCL [Interacting]
     Dosage: 500 MCG/KG/MIN
  7. ISOPRENALINE HCL [Concomitant]
     Dosage: 0.05 MCG/KG/MIN
     Route: 065
  8. AMIODARONE HCL [Interacting]
     Indication: ARRHYTHMIA
  9. LIDOCAINE [Interacting]
     Indication: ARRHYTHMIA
  10. LIDOCAINE [Interacting]
     Dosage: 10 MCG/KG/MIN, INCREASED TO 40 MCG/KG/MIN
  11. ESMOLOL HCL [Interacting]
     Indication: ARRHYTHMIA
     Dosage: 66 MCG/KG/MIN INFUSION
  12. ESMOLOL HCL [Interacting]
     Dosage: 250 MCG MCG/KG/MIN
  13. PHENYTOIN [Interacting]
     Indication: ARRHYTHMIA
  14. PHENYTOIN [Interacting]
     Route: 040
  15. ESMOLOL HCL [Interacting]
     Dosage: 30 MCG/KG/MIN, INCREASED TO 200 MCG/KG/MIN
  16. MAGNESIUM [Concomitant]
     Indication: TORSADE DE POINTES
     Dosage: 25 MG/KG/DOSE
     Route: 065
  17. FENTANYL [Concomitant]
     Indication: ANAESTHESIA
     Dosage: 5 MCG/KG
     Route: 065
  18. VECURONIUM BROMIDE [Concomitant]
     Indication: ANAESTHESIA
     Dosage: 0.1 MG/KG
     Route: 065
  19. AMIODARONE HCL [Suspect]
     Indication: TORSADE DE POINTES
  20. POTASSIUM [Concomitant]
     Dosage: 1 MEQ/KG/DOSE
     Route: 065
  21. DOPAMINE HCL [Concomitant]
     Route: 065

REACTIONS (4)
  - DRUG INTERACTION [None]
  - NERVOUS SYSTEM DISORDER [None]
  - TOXICITY TO VARIOUS AGENTS [None]
  - VENTRICULAR ARRHYTHMIA [None]
